FAERS Safety Report 7595766-6 (Version None)
Quarter: 2011Q3

REPORT INFORMATION
  Report Type: 
  Country: None (occurrence: None)
  Receive Date: 20110707
  Receipt Date: 20110630
  Transmission Date: 20111222
  Serious: Yes (Death)
  Sender: FDA-Public Use
  Company Number: ES-GENZYME-FABR-1001998

PATIENT
  Sex: Male

DRUGS (3)
  1. FABRAZYME [Suspect]
     Indication: FABRY'S DISEASE
     Dosage: 0.5 MG/KG, Q2W
     Route: 042
     Dates: start: 20090701, end: 20100701
  2. FABRAZYME [Suspect]
     Dosage: 1 MG/KG, Q2W
     Route: 042
     Dates: start: 20060201, end: 20090701
  3. REPLAGAL [Concomitant]
     Indication: FABRY'S DISEASE
     Dosage: UNK
     Dates: start: 20100701

REACTIONS (1)
  - MYOCARDIAL INFARCTION [None]
